FAERS Safety Report 20411160 (Version 1)
Quarter: 2022Q1

REPORT INFORMATION
  Report Type: Spontaneous
  Country: US (occurrence: US)
  Receive Date: 20220201
  Receipt Date: 20220201
  Transmission Date: 20220423
  Serious: No
  Sender: FDA-Public Use
  Company Number: US-PFIZER INC-202101514806

PATIENT
  Age: 75 Year
  Sex: Male
  Weight: 89.342 kg

DRUGS (1)
  1. INLYTA [Suspect]
     Active Substance: AXITINIB
     Indication: Renal cancer
     Dosage: 5 MG, 2X/DAY
     Route: 048

REACTIONS (3)
  - Asthenia [Unknown]
  - Diarrhoea [Unknown]
  - Speech disorder [Unknown]
